FAERS Safety Report 13175995 (Version 1)
Quarter: 2017Q1

REPORT INFORMATION
  Report Type: Report from Study
  Country: US (occurrence: US)
  Receive Date: 20170201
  Receipt Date: 20170201
  Transmission Date: 20170428
  Serious: Yes (Hospitalization, Other)
  Sender: FDA-Public Use
  Company Number: US-BAUSCH-BL-2017-002230

PATIENT
  Age: 78 Year
  Sex: Female

DRUGS (1)
  1. XIFAXAN [Suspect]
     Active Substance: RIFAXIMIN
     Indication: HEPATIC CIRRHOSIS
     Route: 065
     Dates: start: 20160601

REACTIONS (4)
  - Abdominal cavity drainage [Unknown]
  - Bronchitis [Unknown]
  - Hospitalisation [Unknown]
  - Renal impairment [Unknown]

NARRATIVE: CASE EVENT DATE: 201612
